FAERS Safety Report 25835641 (Version 1)
Quarter: 2025Q3

REPORT INFORMATION
  Report Type: Report from Study
  Country: US (occurrence: US)
  Receive Date: 20250923
  Receipt Date: 20250923
  Transmission Date: 20251020
  Serious: Yes (Other)
  Sender: ACADIA PHARMACEUTICALS
  Company Number: US-ACADIA PHARMACEUTICALS INC.-ACA-2025-PIM-010467

PATIENT
  Sex: Male

DRUGS (20)
  1. NUPLAZID [Suspect]
     Active Substance: PIMAVANSERIN TARTRATE
     Indication: Parkinson^s disease
     Dosage: 34 MILLIGRAM, QD
     Route: 048
     Dates: start: 20250611
  2. VITAMIN B [Concomitant]
     Active Substance: VITAMIN B
  3. CARBIDOPA\LEVODOPA [Concomitant]
     Active Substance: CARBIDOPA\LEVODOPA
  4. DOCUSATE SODIUM [Concomitant]
     Active Substance: DOCUSATE SODIUM
  5. OCUVITE ADULT 50+ [ASCORBIC ACID;COPPER GLUCONATE;FISH OIL;TOCOPHEROL; [Concomitant]
  6. CELECOXIB [Concomitant]
     Active Substance: CELECOXIB
  7. TADALAFIL [Concomitant]
     Active Substance: TADALAFIL
  8. KLAYESTA [Concomitant]
     Active Substance: NYSTATIN
  9. ELIQUIS [Concomitant]
     Active Substance: APIXABAN
  10. VITAMIN D NOS [Concomitant]
     Active Substance: CHOLECALCIFEROL\ERGOCALCIFEROL
  11. BACLOFEN [Concomitant]
     Active Substance: BACLOFEN
  12. CIPROFLOXACIN [Concomitant]
     Active Substance: CIPROFLOXACIN
  13. ALLOPURINOL [Concomitant]
     Active Substance: ALLOPURINOL
  14. RYTARY [Concomitant]
     Active Substance: CARBIDOPA\LEVODOPA
  15. BUDESONIDE [Concomitant]
     Active Substance: BUDESONIDE
  16. PANTOPRAZOLE [Concomitant]
     Active Substance: PANTOPRAZOLE
  17. QUETIAPINE [Concomitant]
     Active Substance: QUETIAPINE
  18. KETOCONAZOLE [Concomitant]
     Active Substance: KETOCONAZOLE
  19. AMOXICILLIN\CLAVULANIC ACID [Concomitant]
     Active Substance: AMOXICILLIN\CLAVULANIC ACID
  20. DOXYCYCLINE [Concomitant]
     Active Substance: DOXYCYCLINE

REACTIONS (1)
  - Hallucination [Recovered/Resolved]
